FAERS Safety Report 13846040 (Version 1)
Quarter: 2017Q3

REPORT INFORMATION
  Report Type: Spontaneous
  Country: US (occurrence: US)
  Receive Date: 20170808
  Receipt Date: 20170808
  Transmission Date: 20171127
  Serious: No
  Sender: FDA-Public Use
  Company Number: US-ROCHE-738277

PATIENT
  Age: 70 Year
  Sex: Female

DRUGS (2)
  1. HYALGAN [Interacting]
     Active Substance: HYALURONATE SODIUM
     Indication: ARTHRALGIA
     Route: 014
     Dates: start: 201001, end: 201002
  2. BONIVA [Suspect]
     Active Substance: IBANDRONATE SODIUM
     Indication: ARTHRALGIA
     Dosage: RECEIVED TWO DOSES
     Route: 065

REACTIONS (3)
  - Therapeutic response decreased [Unknown]
  - Arthralgia [Unknown]
  - Adverse drug reaction [Unknown]

NARRATIVE: CASE EVENT DATE: 201004
